FAERS Safety Report 24372225 (Version 2)
Quarter: 2024Q4

REPORT INFORMATION
  Report Type: Spontaneous
  Country: GB (occurrence: GB)
  Receive Date: 20240927
  Receipt Date: 20241104
  Transmission Date: 20250114
  Serious: Yes (Hospitalization, Other)
  Sender: TEVA
  Company Number: GB-LDELTA-NLLD0004751

PATIENT
  Age: 43 Year
  Sex: Male

DRUGS (10)
  1. VINCRISTINE [Interacting]
     Active Substance: VINCRISTINE
     Route: 065
     Dates: end: 2011
  2. RITUXIMAB [Interacting]
     Active Substance: RITUXIMAB
     Route: 065
     Dates: start: 20100326, end: 2011
  3. VITAMIN B12 [Concomitant]
     Active Substance: CYANOCOBALAMIN
     Dosage: EVERY 3/12
     Dates: start: 2007
  4. DOXORUBICIN [Interacting]
     Active Substance: DOXORUBICIN
     Route: 065
     Dates: start: 20100326, end: 2011
  5. PREDNISOLONE [Interacting]
     Active Substance: PREDNISOLONE
     Route: 065
     Dates: start: 20100326, end: 2011
  6. CLOZAPINE [Suspect]
     Active Substance: CLOZAPINE
     Route: 065
     Dates: start: 20070510
  7. AMISULPRIDE [Concomitant]
     Active Substance: AMISULPRIDE
     Dates: start: 2005
  8. LANSOPRAZOLE [Concomitant]
     Active Substance: LANSOPRAZOLE
  9. CYCLOPHOSPHAMIDE [Interacting]
     Active Substance: CYCLOPHOSPHAMIDE
     Route: 065
     Dates: start: 20100326, end: 2011
  10. CYCLOPHOSPHAMIDE [Interacting]
     Active Substance: CYCLOPHOSPHAMIDE
     Route: 065
     Dates: start: 20100326, end: 2011

REACTIONS (5)
  - Diffuse large B-cell lymphoma [Not Recovered/Not Resolved]
  - Neutropenia [Recovered/Resolved]
  - Non-Hodgkin^s lymphoma unspecified histology indolent stage IV [Not Recovered/Not Resolved]
  - Leukopenia [Recovered/Resolved]
  - Drug interaction [Unknown]

NARRATIVE: CASE EVENT DATE: 20100201
